FAERS Safety Report 11304275 (Version 1)
Quarter: 2015Q3

REPORT INFORMATION
  Report Type: Spontaneous
  Country: US (occurrence: US)
  Receive Date: 20150723
  Receipt Date: 20150723
  Transmission Date: 20151125
  Serious: No
  Sender: FDA-Public Use
  Company Number: US-JNJFOC-20150516800

PATIENT
  Sex: Female

DRUGS (2)
  1. PEPCID AC MAXIMUM STRENGTH [Suspect]
     Active Substance: FAMOTIDINE
     Route: 048
  2. PEPCID AC MAXIMUM STRENGTH [Suspect]
     Active Substance: FAMOTIDINE
     Indication: GASTROOESOPHAGEAL REFLUX DISEASE
     Dosage: TWO 20MG TABLETS IN LESS THAN 24 HOURS (1 TABLET LAST NIGHT AND ANOTHER 1 THIS MORNING)
     Route: 048
     Dates: start: 20150521

REACTIONS (2)
  - Discomfort [Unknown]
  - Drug ineffective [Unknown]
